FAERS Safety Report 20665932 (Version 1)
Quarter: 2022Q2

REPORT INFORMATION
  Report Type: Spontaneous
  Country: US (occurrence: US)
  Receive Date: 20220403
  Receipt Date: 20220403
  Transmission Date: 20220720
  Serious: No
  Sender: FDA-Public Use
  Company Number: US-TEVA-2022-US-2015351

PATIENT
  Age: 100 Year
  Sex: Female

DRUGS (1)
  1. CEPHALEXIN [Suspect]
     Active Substance: CEPHALEXIN
     Indication: Limb injury
     Route: 065
     Dates: start: 2022, end: 20220303

REACTIONS (5)
  - Petechiae [Not Recovered/Not Resolved]
  - Papule [Not Recovered/Not Resolved]
  - Erythema [Not Recovered/Not Resolved]
  - Platelet count decreased [Unknown]
  - Mass [Not Recovered/Not Resolved]

NARRATIVE: CASE EVENT DATE: 20220302
